FAERS Safety Report 16384687 (Version 1)
Quarter: 2019Q2

REPORT INFORMATION
  Report Type: Report from Study
  Country: US (occurrence: US)
  Receive Date: 20190603
  Receipt Date: 20190603
  Transmission Date: 20190711
  Serious: Yes (Other)
  Sender: FDA-Public Use
  Company Number: US-JNJFOC-20190542756

PATIENT
  Sex: Female

DRUGS (19)
  1. FLUTICASONE PROPIONATE W/SALMETEROL XINAFOATE [Concomitant]
     Active Substance: FLUTICASONE PROPIONATE\SALMETEROL XINAFOATE
  2. CLINDAMYCIN. [Concomitant]
     Active Substance: CLINDAMYCIN
  3. DIAZEPAM. [Concomitant]
     Active Substance: DIAZEPAM
  4. TAMSULOSIN HYDROCHLORIDE. [Concomitant]
     Active Substance: TAMSULOSIN HYDROCHLORIDE
  5. ONDANSETRON [Concomitant]
     Active Substance: ONDANSETRON
  6. SYNTHROID [Concomitant]
     Active Substance: LEVOTHYROXINE SODIUM
  7. ZINC. [Concomitant]
     Active Substance: ZINC
  8. AZITHROMYCIN ANHYDROUS. [Concomitant]
     Active Substance: AZITHROMYCIN ANHYDROUS
  9. FISH OIL OMEGA 3 [Concomitant]
     Active Substance: FISH OIL
  10. PREMPRO [Concomitant]
     Active Substance: ESTROGENS, CONJUGATED\MEDROXYPROGESTERONE ACETATE
  11. CALCIUM [Concomitant]
     Active Substance: CALCIUM
  12. LACTOBACILLUS ACIDOPHILUS [Concomitant]
     Active Substance: LACTOBACILLUS ACIDOPHILUS
  13. BIOTIN [Concomitant]
     Active Substance: BIOTIN
  14. LANSOPRAZOLE. [Concomitant]
     Active Substance: LANSOPRAZOLE
  15. IMBRUVICA [Suspect]
     Active Substance: IBRUTINIB
     Indication: LYMPHOCYTIC LEUKAEMIA
     Route: 048
     Dates: start: 20190103
  16. ASCORBIC ACID. [Concomitant]
     Active Substance: ASCORBIC ACID
  17. MAGNESIUM [Concomitant]
     Active Substance: MAGNESIUM
  18. MAXZIDE [Concomitant]
     Active Substance: HYDROCHLOROTHIAZIDE\TRIAMTERENE
  19. CHONDROITIN SULFATE W/GLUCOSAMINE SULFATE [Concomitant]

REACTIONS (2)
  - Renal disorder [Recovered/Resolved]
  - Renal pain [Unknown]
